FAERS Safety Report 12060358 (Version 2)
Quarter: 2016Q1

REPORT INFORMATION
  Report Type: Spontaneous
  Country: US (occurrence: US)
  Receive Date: 20160210
  Receipt Date: 20160323
  Transmission Date: 20160526
  Serious: Yes (Other)
  Sender: FDA-Public Use
  Company Number: CHPA2016US001322

PATIENT
  Age: 68 Year
  Sex: Female

DRUGS (3)
  1. EX-LAX REGULAR STRENGTH STIMULANT LAXATIVE [Suspect]
     Active Substance: SENNOSIDES
     Indication: CONSTIPATION
     Dosage: UNK
     Route: 065
  2. EX-LAX REGULAR STRENGTH CHOCOLATED STIMULANT LAXATIVE [Suspect]
     Active Substance: SENNOSIDES
     Indication: CONSTIPATION
     Dosage: 4 DF, QD
     Route: 048
  3. ATIVAN [Concomitant]
     Active Substance: LORAZEPAM
     Indication: DEPRESSION
     Route: 065

REACTIONS (4)
  - Diabetes mellitus [Unknown]
  - Incorrect dose administered [Unknown]
  - Visual impairment [Unknown]
  - Drug ineffective [Unknown]

NARRATIVE: CASE EVENT DATE: 2015
